FAERS Safety Report 8571738-X (Version None)
Quarter: 2012Q3

REPORT INFORMATION
  Report Type: 
  Country: None (occurrence: None)
  Receive Date: 20120806
  Receipt Date: 20120802
  Transmission Date: 20120928
  Serious: Yes (Hospitalization)
  Sender: FDA-Public Use
  Company Number: PHHY2012RS066919

PATIENT
  Sex: Male

DRUGS (2)
  1. TEGRETOL [Suspect]
     Indication: EPILEPSY
     Dosage: 500 MG, (DOSING REGIMEN: 200MG+0+300MG)
     Dates: start: 20120709, end: 20120723
  2. PANKLAV [Concomitant]
     Indication: ACUTE SINUSITIS
     Dosage: 1 DF, TID (3X1 TABLETS)
     Route: 048
     Dates: start: 20120723, end: 20120723

REACTIONS (4)
  - PRURITUS [None]
  - CONVULSION [None]
  - SINUSITIS [None]
  - RASH GENERALISED [None]
